FAERS Safety Report 23963730 (Version 1)
Quarter: 2024Q2

REPORT INFORMATION
  Report Type: Spontaneous
  Country: CN (occurrence: CN)
  Receive Date: 20240611
  Receipt Date: 20240611
  Transmission Date: 20240715
  Serious: Yes (Hospitalization, Other)
  Sender: FDA-Public Use
  Company Number: CN-009507513-2406CHN001166

PATIENT
  Age: 33 Year
  Sex: Female

DRUGS (4)
  1. PEMBROLIZUMAB [Suspect]
     Active Substance: PEMBROLIZUMAB
     Indication: Adenocarcinoma gastric
     Dosage: 2 MILLIGRAM/KILOGRAM (TOTAL 100 MG), Q3W
     Route: 042
     Dates: start: 20190903, end: 20190903
  2. PEMBROLIZUMAB [Suspect]
     Active Substance: PEMBROLIZUMAB
     Dosage: 2 MILLIGRAM/KILOGRAM (TOTAL 100 MG), Q3W
     Route: 042
     Dates: start: 20190929, end: 20190929
  3. PEMBROLIZUMAB [Suspect]
     Active Substance: PEMBROLIZUMAB
     Dosage: 2 MILLIGRAM/KILOGRAM (TOTAL 100 MG), Q3W
     Route: 042
     Dates: start: 20191019, end: 20191019
  4. PEMBROLIZUMAB [Suspect]
     Active Substance: PEMBROLIZUMAB
     Dosage: 2 MILLIGRAM/KILOGRAM (TOTAL 100 MG), Q3W
     Route: 042
     Dates: start: 20191111, end: 20200224

REACTIONS (18)
  - Hypotension [Recovering/Resolving]
  - Myocarditis [Recovering/Resolving]
  - Oxygen saturation decreased [Recovering/Resolving]
  - Drug hypersensitivity [Recovering/Resolving]
  - Hypotension [Recovering/Resolving]
  - Pyrexia [Recovering/Resolving]
  - Dyspnoea [Recovering/Resolving]
  - Oxygen saturation decreased [Recovering/Resolving]
  - Cough [Recovering/Resolving]
  - Hyperhidrosis [Recovering/Resolving]
  - Malaise [Recovering/Resolving]
  - White blood cell count increased [Recovering/Resolving]
  - Neutrophil percentage abnormal [Recovering/Resolving]
  - Drug resistance [Unknown]
  - Underdose [Unknown]
  - Inappropriate schedule of product administration [Unknown]
  - Inappropriate schedule of product administration [Unknown]
  - Inappropriate schedule of product administration [Unknown]

NARRATIVE: CASE EVENT DATE: 20190903
